FAERS Safety Report 6608694-7 (Version None)
Quarter: 2010Q1

REPORT INFORMATION
  Report Type: 
  Country: None (occurrence: None)
  Receive Date: 20100224
  Receipt Date: 20100224
  Transmission Date: 20100710
  Serious: No
  Sender: FDA-Public Use
  Company Number: None

PATIENT
  Age: 39 Year
  Sex: Male
  Weight: 84.8226 kg

DRUGS (2)
  1. FLUVOXAMINE MALEATE [Suspect]
     Dosage: 100MG/DAY PO
     Route: 048
  2. D/C LOXAPINE [Concomitant]

REACTIONS (2)
  - DELUSION [None]
  - PALPITATIONS [None]
